FAERS Safety Report 8073919-0 (Version None)
Quarter: 2012Q1

REPORT INFORMATION
  Report Type: 
  Country: None (occurrence: None)
  Receive Date: 20120126
  Receipt Date: 20120112
  Transmission Date: 20120608
  Serious: Yes (Hospitalization)
  Sender: FDA-Public Use
  Company Number: CA-JNJFOC-20120110816

PATIENT
  Sex: Female
  Weight: 68.2 kg

DRUGS (7)
  1. REMICADE [Suspect]
     Indication: CROHN'S DISEASE
     Dosage: EVERY 6 TO 8 WEEKS (20 INFUSIONS TOTAL)
     Route: 042
     Dates: start: 20091002
  2. OXYCODONE HCL [Concomitant]
     Dosage: Q 8 HOURS AS NEEDED
  3. QUETIAPINE [Concomitant]
  4. NABILONE [Concomitant]
  5. VALPROATE SODIUM [Concomitant]
  6. TYLENOL W/ CODEINE [Concomitant]
     Dosage: AS NEEDED
  7. REMICADE [Suspect]
     Route: 042
     Dates: start: 20120112

REACTIONS (1)
  - HIP ARTHROPLASTY [None]
